FAERS Safety Report 8345837-1 (Version None)
Quarter: 2012Q2

REPORT INFORMATION
  Report Type: 
  Country: None (occurrence: None)
  Receive Date: 20120509
  Receipt Date: 20120502
  Transmission Date: 20120825
  Serious: Yes (Hospitalization)
  Sender: FDA-Public Use
  Company Number: US-BIOGENIDEC-2012BI015498

PATIENT
  Age: 46 Year
  Sex: Female

DRUGS (1)
  1. TYSABRI [Suspect]
     Indication: MULTIPLE SCLEROSIS
     Route: 042
     Dates: start: 20111011

REACTIONS (5)
  - BREAST RECONSTRUCTION [None]
  - PLASTIC SURGERY [None]
  - JC VIRUS TEST POSITIVE [None]
  - ANTIBODY TEST POSITIVE [None]
  - NEOPLASM MALIGNANT [None]
